FAERS Safety Report 22228906 (Version 1)
Quarter: 2023Q2

REPORT INFORMATION
  Report Type: Spontaneous
  Country: FR (occurrence: FR)
  Receive Date: 20230419
  Receipt Date: 20230419
  Transmission Date: 20230721
  Serious: Yes (Disabling, Other)
  Sender: FDA-Public Use
  Company Number: None

PATIENT
  Age: 18 Year
  Sex: Male
  Weight: 64 kg

DRUGS (5)
  1. CIPROFLOXACIN [Suspect]
     Active Substance: CIPROFLOXACIN
     Dosage: 500 X 2 FOIS PAR JOUR
     Route: 048
     Dates: start: 20220915, end: 20220916
  2. ROXITHROMYCIN [Concomitant]
     Active Substance: ROXITHROMYCIN
     Route: 048
     Dates: start: 20220917, end: 20220919
  3. ESOMEPRAZOLE [Concomitant]
     Active Substance: ESOMEPRAZOLE
     Route: 048
     Dates: start: 20220916, end: 20220918
  4. DEXAMETHASONE SODIUM PHOSPHATE\NYSTATIN\OXYTETRACYCLINE\POLYMYXIN B SU [Concomitant]
     Active Substance: DEXAMETHASONE SODIUM PHOSPHATE\NYSTATIN\OXYTETRACYCLINE\POLYMYXIN B SULFATE
     Route: 048
     Dates: start: 20220915, end: 20220921
  5. PREDNISOLONE [Concomitant]
     Active Substance: PREDNISOLONE
     Route: 048
     Dates: start: 20220916, end: 20220918

REACTIONS (6)
  - Bone marrow oedema [Recovering/Resolving]
  - Tendon disorder [Recovering/Resolving]
  - Paraesthesia [Recovering/Resolving]
  - Depression [Not Recovered/Not Resolved]
  - Tachycardia [Not Recovered/Not Resolved]
  - Musculoskeletal pain [Recovering/Resolving]

NARRATIVE: CASE EVENT DATE: 20220916
